FAERS Safety Report 7827116-1 (Version None)
Quarter: 2011Q4

REPORT INFORMATION
  Report Type: 
  Country: None (occurrence: None)
  Receive Date: 20111020
  Receipt Date: 20111010
  Transmission Date: 20120403
  Serious: Yes (Death)
  Sender: FDA-Public Use
  Company Number: US-BAYER-2011-014007

PATIENT
  Age: 33 Year
  Sex: Female
  Weight: 83 kg

DRUGS (9)
  1. MULTI-VITAMIN [Concomitant]
     Dosage: UNK
     Dates: start: 20080203
  2. YASMIN [Suspect]
     Indication: ORAL CONTRACEPTION
     Dosage: UNK
     Dates: start: 20041001, end: 20080201
  3. ALLEGRA D 24 HOUR [Concomitant]
     Indication: MULTIPLE ALLERGIES
     Dosage: UNK
     Dates: start: 20040101, end: 20080101
  4. MAGNESIUM [Concomitant]
     Dosage: UNK
     Dates: start: 20080203
  5. IBUPROFEN (ADVIL) [Concomitant]
     Indication: PAIN
  6. ASPIRIN [Concomitant]
     Dosage: UNK UNK, Q1MON
  7. IBUPROFEN [Concomitant]
     Dosage: UNK UNK, Q1MON
  8. BENADRYL [Concomitant]
  9. CALCIUM D [Concomitant]

REACTIONS (6)
  - PULMONARY EMBOLISM [None]
  - EMOTIONAL DISTRESS [None]
  - PAIN [None]
  - INJURY [None]
  - GENERAL PHYSICAL HEALTH DETERIORATION [None]
  - ANXIETY [None]
